FAERS Safety Report 9852377 (Version 1)
Quarter: 2014Q1

REPORT INFORMATION
  Report Type: Spontaneous
  Country: US (occurrence: None)
  Receive Date: 20140127
  Receipt Date: 20140127
  Transmission Date: 20141002
  Serious: Yes (Hospitalization)
  Sender: FDA-Public Use
  Company Number: QSC-2013-0142

PATIENT
  Age: 5 Month
  Sex: Female

DRUGS (2)
  1. H.P. ACTHAR [Suspect]
     Indication: INFANTILE SPASMS
     Dosage: 80 UNITS, QD FOR 2 WEEKS, INTRAMUSCULAR
     Route: 030
     Dates: start: 20130320, end: 20130408
  2. PRILOSEC (OMEPRAZOLE) [Concomitant]

REACTIONS (2)
  - Medication error [None]
  - Hypertension [None]
